FAERS Safety Report 4385612-6 (Version None)
Quarter: 2004Q2

REPORT INFORMATION
  Report Type: 
  Country: None (occurrence: None)
  Receive Date: 20040625
  Receipt Date: 20040625
  Transmission Date: 20050107
  Serious: Yes (Hospitalization)
  Sender: FDA-Public Use
  Company Number: None

PATIENT

DRUGS (2)
  1. IBUPROFEN [Suspect]
  2. NAPROXEN [Suspect]

REACTIONS (2)
  - ULCER [None]
  - UPPER GASTROINTESTINAL HAEMORRHAGE [None]
